FAERS Safety Report 9916739 (Version 2)
Quarter: 2014Q1

REPORT INFORMATION
  Report Type: Report from Study
  Country: CA (occurrence: CA)
  Receive Date: 20140221
  Receipt Date: 20140228
  Transmission Date: 20141002
  Serious: Yes (Other)
  Sender: FDA-Public Use
  Company Number: CA-UCBSA-113125

PATIENT
  Age: 71 Year
  Sex: Female
  Weight: 67.1 kg

DRUGS (10)
  1. CIMZIA [Suspect]
     Indication: RHEUMATOID ARTHRITIS
     Route: 058
     Dates: start: 20130808, end: 20130905
  2. CIMZIA [Suspect]
     Indication: RHEUMATOID ARTHRITIS
     Route: 058
     Dates: start: 20130919
  3. METHOTREXATE [Concomitant]
     Indication: RHEUMATOID ARTHRITIS
     Route: 058
     Dates: start: 201110
  4. COVERSYL [Concomitant]
     Indication: HYPERTENSION
     Route: 048
  5. NORVASC [Concomitant]
     Indication: HYPERTENSION
     Route: 048
  6. FOLIC ACID [Concomitant]
     Indication: SUPPLEMENTATION THERAPY
     Dosage: 5/7
     Route: 048
     Dates: start: 201110
  7. LOSEC [Concomitant]
     Indication: PROPHYLAXIS AGAINST GASTROINTESTINAL ULCER
     Route: 048
  8. CLONAZEPAM [Concomitant]
     Indication: INSOMNIA
     Dosage: HS
     Route: 048
  9. CA++ [Concomitant]
     Indication: SUPPLEMENTATION THERAPY
     Route: 048
  10. VIT D [Concomitant]
     Indication: SUPPLEMENTATION THERAPY
     Route: 048

REACTIONS (2)
  - Squamous cell carcinoma [Not Recovered/Not Resolved]
  - Melanocytic naevus [Unknown]
